FAERS Safety Report 4821712-1 (Version None)
Quarter: 2005Q4

REPORT INFORMATION
  Report Type: 
  Country: None (occurrence: None)
  Receive Date: 20051104
  Receipt Date: 20051104
  Transmission Date: 20060501
  Serious: Yes (Hospitalization)
  Sender: FDA-Public Use
  Company Number: None

PATIENT
  Sex: Male

DRUGS (1)
  1. VANCOMYCIN [Suspect]
     Indication: NECROTISING FASCIITIS
     Dosage: 1 G
     Dates: start: 20050428, end: 20050429

REACTIONS (2)
  - RASH GENERALISED [None]
  - SKIN EXFOLIATION [None]
